FAERS Safety Report 12544471 (Version 2)
Quarter: 2016Q3

REPORT INFORMATION
  Report Type: Spontaneous
  Country: GB (occurrence: GB)
  Receive Date: 20160711
  Receipt Date: 20160802
  Transmission Date: 20161109
  Serious: Yes (Other)
  Sender: FDA-Public Use
  Company Number: GB-AUROBINDO-AUR-APL-2016-08494

PATIENT

DRUGS (8)
  1. SEROXAT [Suspect]
     Active Substance: PAROXETINE HYDROCHLORIDE
     Indication: ANXIETY
     Dosage: 20 MG, BID
     Route: 048
     Dates: start: 19990809
  2. PAXIL [Suspect]
     Active Substance: PAROXETINE HYDROCHLORIDE
     Dosage: UNK
     Route: 065
  3. PAXIL [Suspect]
     Active Substance: PAROXETINE HYDROCHLORIDE
     Indication: DEPRESSION
     Dosage: UNK
     Route: 048
     Dates: start: 199904, end: 200302
  4. SEROXAT [Suspect]
     Active Substance: PAROXETINE HYDROCHLORIDE
     Indication: DEPRESSED MOOD
     Dosage: UNK
     Route: 048
     Dates: start: 199904, end: 200302
  5. PAROXETINE TABLETS 20 MG [Suspect]
     Active Substance: PAROXETINE HYDROCHLORIDE
     Indication: DEPRESSION
     Dosage: 20 MG, ONCE A DAY
     Route: 048
     Dates: start: 19991014
  6. PAXIL [Suspect]
     Active Substance: PAROXETINE HYDROCHLORIDE
     Indication: ANXIETY
     Dosage: 20 MG, TWO TIMES A DAY
     Route: 048
     Dates: start: 19990809
  7. SEROXAT [Suspect]
     Active Substance: PAROXETINE HYDROCHLORIDE
     Indication: DEPRESSION
  8. DIAZEPAM. [Concomitant]
     Active Substance: DIAZEPAM
     Indication: PRODUCT USED FOR UNKNOWN INDICATION
     Route: 065
     Dates: start: 20021226

REACTIONS (21)
  - Drug withdrawal syndrome [Unknown]
  - Memory impairment [Unknown]
  - Panic attack [Unknown]
  - Agoraphobia [Unknown]
  - Syncope [Unknown]
  - Fatigue [Unknown]
  - Headache [Unknown]
  - Claustrophobia [Unknown]
  - Chest pain [Unknown]
  - Depressed mood [Unknown]
  - Dizziness [Unknown]
  - Anxiety [Unknown]
  - Aggression [Unknown]
  - Paranoia [Unknown]
  - Immune system disorder [Unknown]
  - Depression [Unknown]
  - Suicidal behaviour [Unknown]
  - Stress [Unknown]
  - Chloasma [Unknown]
  - Palpitations [Unknown]
  - Dyspnoea [Unknown]

NARRATIVE: CASE EVENT DATE: 19991014
